FAERS Safety Report 6679546-1 (Version None)
Quarter: 2010Q2

REPORT INFORMATION
  Report Type: 
  Country: None (occurrence: None)
  Receive Date: 20100413
  Receipt Date: 20100401
  Transmission Date: 20101027
  Serious: Yes (Hospitalization, Other)
  Sender: FDA-Public Use
  Company Number: PHHY2010DE22065

PATIENT
  Sex: Male
  Weight: 103 kg

DRUGS (8)
  1. ALISKIREN ALI+ [Suspect]
     Indication: HYPERTENSION
     Dosage: 2 DF (150 MG),DAILY
     Route: 048
     Dates: start: 20081201, end: 20090330
  2. EXFORGE [Suspect]
     Indication: HYPERTENSION
     Dosage: 1 DF, DAILY
     Route: 048
     Dates: start: 20081201
  3. INSIDON [Suspect]
     Dosage: 1 DF, PRN
     Route: 048
     Dates: start: 20090114
  4. HYDROCHLOROTHIAZIDE [Suspect]
     Indication: HYPERTENSION
     Dosage: 1 DF, PER DAY
     Route: 048
     Dates: start: 20090114, end: 20090330
  5. ACE INHIBITOR NOS [Concomitant]
     Dosage: UNK
     Dates: start: 20081103
  6. BETA BLOCKING AGENTS [Concomitant]
  7. SALBUTAMOL [Concomitant]
     Indication: ASTHMA
     Dosage: 1 DF, PRN
     Route: 048
     Dates: start: 20090114
  8. LEVOTHYROXINE SODIUM [Concomitant]
     Indication: THYROID DISORDER
     Dosage: 1 DF, PER DAY
     Route: 048
     Dates: start: 20090114, end: 20090707

REACTIONS (2)
  - BLOOD SODIUM INCREASED [None]
  - SYNCOPE [None]
